FAERS Safety Report 4578937-2 (Version None)
Quarter: 2005Q1

REPORT INFORMATION
  Report Type: 
  Country: None (occurrence: None)
  Receive Date: 20050211
  Receipt Date: 20050203
  Transmission Date: 20050727
  Serious: Yes (Death, Hospitalization)
  Sender: FDA-Public Use
  Company Number: IT-MERCK-0502ITA00006

PATIENT
  Age: 63 Year
  Sex: Male

DRUGS (8)
  1. ZOCOR [Suspect]
     Indication: HYPERCHOLESTEROLAEMIA
     Route: 048
     Dates: start: 20041224, end: 20050118
  2. FUROSEMIDE SODIUM [Concomitant]
     Indication: RENAL FAILURE CHRONIC
     Route: 048
     Dates: start: 20041224, end: 20050124
  3. CARVEDILOL [Concomitant]
     Route: 048
     Dates: start: 20041224, end: 20050124
  4. ASPIRIN [Concomitant]
     Indication: MYOCARDIAL ISCHAEMIA
     Route: 048
     Dates: start: 20041224, end: 20050125
  5. ISOSORBIDE MONONITRATE [Concomitant]
     Route: 048
     Dates: start: 20041224, end: 20050125
  6. CALCIUM CARBONATE [Concomitant]
     Indication: RENAL FAILURE CHRONIC
     Route: 048
     Dates: start: 20041224, end: 20050125
  7. EPOETIN BETA [Concomitant]
     Indication: RENAL FAILURE CHRONIC
     Route: 058
     Dates: start: 20041224, end: 20050125
  8. INSULIN HUMAN [Concomitant]
     Indication: DIABETES MELLITUS
     Route: 058
     Dates: start: 20041224, end: 20050125

REACTIONS (3)
  - CARDIAC ARREST [None]
  - RENAL FAILURE ACUTE [None]
  - RHABDOMYOLYSIS [None]
